FAERS Safety Report 25656800 (Version 1)
Quarter: 2025Q3

REPORT INFORMATION
  Report Type: Report from Study
  Country: JP (occurrence: JP)
  Receive Date: 20250807
  Receipt Date: 20250807
  Transmission Date: 20251021
  Serious: Yes (Hospitalization, Other)
  Sender: TAKEDA
  Company Number: JP-TAKEDA-2025TJP007233

PATIENT
  Age: 67 Year
  Sex: Female

DRUGS (2)
  1. FRUQUINTINIB [Suspect]
     Active Substance: FRUQUINTINIB
     Indication: Product used for unknown indication
     Dates: start: 20250630, end: 20250703
  2. FRUQUINTINIB [Suspect]
     Active Substance: FRUQUINTINIB
     Dates: start: 20250712, end: 20250721

REACTIONS (2)
  - Aspartate aminotransferase increased [Recovering/Resolving]
  - Sialoadenitis [Recovering/Resolving]

NARRATIVE: CASE EVENT DATE: 20250704
